FAERS Safety Report 22215143 (Version 2)
Quarter: 2023Q2

REPORT INFORMATION
  Report Type: Spontaneous
  Country: US (occurrence: US)
  Receive Date: 20230415
  Receipt Date: 20230424
  Transmission Date: 20230721
  Serious: No
  Sender: FDA-Public Use
  Company Number: US-TORRENT-00012605

PATIENT
  Sex: Female
  Weight: 54 kg

DRUGS (1)
  1. MONTELUKAST SODIUM [Suspect]
     Active Substance: MONTELUKAST SODIUM
     Indication: Hypersensitivity
     Dosage: 10 MG ONCE A DAY
     Route: 048
     Dates: start: 20230211

REACTIONS (6)
  - Lactose intolerance [Recovered/Resolved]
  - Diarrhoea [Recovered/Resolved]
  - Abdominal pain upper [Recovered/Resolved]
  - Lip swelling [Recovered/Resolved]
  - Rash [Recovering/Resolving]
  - Dehydration [Unknown]
